FAERS Safety Report 9588912 (Version 1)
Quarter: 2013Q4

REPORT INFORMATION
  Report Type: Spontaneous
  Country: US (occurrence: US)
  Receive Date: 20131003
  Receipt Date: 20131003
  Transmission Date: 20140711
  Serious: No
  Sender: FDA-Public Use
  Company Number: US-AMGEN-USASP2012066917

PATIENT
  Age: 54 Year
  Sex: Female
  Weight: 79.82 kg

DRUGS (10)
  1. ENBREL [Suspect]
     Indication: RHEUMATOID ARTHRITIS
     Dosage: 50 MG, QWK
     Route: 058
     Dates: start: 20111101, end: 20120501
  2. HYDROCODONE W/APAP                 /00607101/ [Concomitant]
     Dosage: UNK
  3. CITALOPRAM [Concomitant]
     Dosage: UNK
  4. CYCLOBENZAPRINE [Concomitant]
     Dosage: UNK
  5. INDOMETHACIN                       /00003801/ [Concomitant]
     Dosage: UNK
  6. LISINOPRIL [Concomitant]
     Dosage: UNK
  7. LYRICA [Concomitant]
     Dosage: UNK
  8. METOPROLOL [Concomitant]
     Dosage: UNK
  9. PANTOPRAZOLE [Concomitant]
     Dosage: UNK
  10. VITAMIN E                          /00110501/ [Concomitant]
     Dosage: UNK

REACTIONS (1)
  - Pyrexia [Recovered/Resolved]
